FAERS Safety Report 6900225-7 (Version None)
Quarter: 2010Q3

REPORT INFORMATION
  Report Type: 
  Country: None (occurrence: None)
  Receive Date: 20100803
  Receipt Date: 20100630
  Transmission Date: 20110219
  Serious: Yes (Death)
  Sender: FDA-Public Use
  Company Number: US-ROCHE-710663

PATIENT
  Sex: Female
  Weight: 62.6 kg

DRUGS (11)
  1. ACTEMRA [Suspect]
     Dosage: PATIENT RECEIVED 03 DOSES, FORM INFUSION
     Route: 042
     Dates: start: 20100308, end: 20100308
  2. ACTEMRA [Suspect]
     Route: 042
     Dates: start: 20100408, end: 20100408
  3. ACTEMRA [Suspect]
     Route: 042
     Dates: start: 20100510, end: 20100510
  4. ACTEMRA [Suspect]
     Dosage: DOSE INCREASED
     Route: 042
     Dates: start: 20100607, end: 20100607
  5. FENTANYL CITRATE [Concomitant]
     Indication: PAIN
     Dosage: FORM:PATCH
  6. LEFLUNOMIDE [Concomitant]
     Route: 048
  7. CYMBALTA [Concomitant]
     Indication: DEPRESSION
     Route: 048
  8. MICARDIS [Concomitant]
     Dosage: INDICATION: CARDIAC
     Route: 048
  9. GABAPENTIN [Concomitant]
     Indication: PAIN
     Route: 048
  10. DOXAZOSIN [Concomitant]
     Route: 048
  11. BENAZEPRIL HYDROCHLORIDE [Concomitant]
     Route: 048

REACTIONS (1)
  - CARDIAC ARREST [None]
